FAERS Safety Report 16747284 (Version 1)
Quarter: 2019Q3

REPORT INFORMATION
  Report Type: Spontaneous
  Country: CN (occurrence: CN)
  Receive Date: 20190827
  Receipt Date: 20190827
  Transmission Date: 20191005
  Serious: Yes (Disabling)
  Sender: FDA-Public Use
  Company Number: CN-BAXTER-2019BAX016499

PATIENT
  Age: 42 Year
  Sex: Male
  Weight: 49 kg

DRUGS (6)
  1. 0.9% SODIUM CHLORIDE INJECTION [Suspect]
     Active Substance: SODIUM CHLORIDE
     Dosage: ETOPOSIDE 100 MG + NS
     Route: 041
     Dates: start: 20190726, end: 20190728
  2. HOLOXAN [Suspect]
     Active Substance: IFOSFAMIDE
     Indication: DIFFUSE LARGE B-CELL LYMPHOMA
     Dosage: HOLOXAN + SODIUM CHLORIDE (NS) 500 ML
     Route: 041
     Dates: start: 20190726, end: 20190728
  3. 0.9% SODIUM CHLORIDE INJECTION [Suspect]
     Active Substance: SODIUM CHLORIDE
     Indication: MEDICATION DILUTION
     Dosage: ETOPOSIDE 50 MG + NS
     Route: 041
     Dates: start: 20190726, end: 20190728
  4. ETOPOSIDE. [Suspect]
     Active Substance: ETOPOSIDE
     Dosage: ETOPOSIDE + NS 250 ML
     Route: 041
     Dates: start: 20190726, end: 20190728
  5. 0.9% SODIUM CHLORIDE INJECTION [Suspect]
     Active Substance: SODIUM CHLORIDE
     Dosage: HOLOXAN 1 GRAM + NS
     Route: 041
     Dates: start: 20190726, end: 20190728
  6. ETOPOSIDE. [Suspect]
     Active Substance: ETOPOSIDE
     Indication: DIFFUSE LARGE B-CELL LYMPHOMA
     Dosage: ETOPOSIDE + NS 500 ML
     Route: 041
     Dates: start: 20190726, end: 20190728

REACTIONS (2)
  - Leukopenia [Recovered/Resolved]
  - Neutropenia [Recovered/Resolved]

NARRATIVE: CASE EVENT DATE: 20190806
